FAERS Safety Report 7609314-5 (Version None)
Quarter: 2011Q3

REPORT INFORMATION
  Report Type: 
  Country: None (occurrence: None)
  Receive Date: 20110714
  Receipt Date: 20110701
  Transmission Date: 20111222
  Serious: Yes (Hospitalization, Other)
  Sender: FDA-Public Use
  Company Number: US-BAYER-2011-042798

PATIENT
  Age: 43 Year
  Sex: Female

DRUGS (3)
  1. BETAFERON [Suspect]
     Indication: RELAPSING-REMITTING MULTIPLE SCLEROSIS
     Dosage: 4 MIU, QOD
     Route: 058
     Dates: start: 20110428
  2. LYRICA [Concomitant]
     Indication: FIBROMYALGIA
  3. BETAFERON [Suspect]
     Dosage: 8 MIU, QOD
     Route: 058
     Dates: end: 20110621

REACTIONS (4)
  - HOSPITALISATION [None]
  - BLINDNESS [None]
  - PAIN [None]
  - MOBILITY DECREASED [None]
